FAERS Safety Report 4942735-8 (Version None)
Quarter: 2006Q1

REPORT INFORMATION
  Report Type: 
  Country: None (occurrence: None)
  Receive Date: 20060314
  Receipt Date: 20060303
  Transmission Date: 20060701
  Serious: Yes (Death, Hospitalization)
  Sender: FDA-Public Use
  Company Number: NSADSS2003008448

PATIENT
  Sex: Female

DRUGS (2)
  1. REMICADE [Suspect]
     Indication: POLYMYOSITIS
     Dosage: RECEIVED TOTAL OF THREE INFUSIONS
     Route: 041
  2. PREDNISONE [Concomitant]

REACTIONS (3)
  - CEREBROVASCULAR ACCIDENT [None]
  - GASTROINTESTINAL HAEMORRHAGE [None]
  - PULMONARY TUBERCULOSIS [None]
